FAERS Safety Report 20318531 (Version 1)
Quarter: 2022Q1

REPORT INFORMATION
  Report Type: Spontaneous
  Country: TW (occurrence: TW)
  Receive Date: 20220110
  Receipt Date: 20220110
  Transmission Date: 20220423
  Serious: Yes (Life-Threatening, Other)
  Sender: FDA-Public Use
  Company Number: TW-MLMSERVICE-20211227-3288886-1

PATIENT
  Age: 53 Year
  Sex: Male

DRUGS (2)
  1. GEMCITABINE HYDROCHLORIDE [Suspect]
     Active Substance: GEMCITABINE HYDROCHLORIDE
     Indication: Cholangiocarcinoma
     Dosage: 1000 MG/M2 ON DAYS 1 AND 8 EVERY 3 WEEKS
     Route: 065
     Dates: start: 201910
  2. CISPLATIN [Suspect]
     Active Substance: CISPLATIN
     Indication: Cholangiocarcinoma
     Dosage: 25 MG/M2 ON DAYS 1 AND 8 EVERY 3 WEEKS
     Route: 065
     Dates: start: 201910

REACTIONS (1)
  - Treatment failure [Recovering/Resolving]

NARRATIVE: CASE EVENT DATE: 20190101
